FAERS Safety Report 5253978-0 (Version None)
Quarter: 2007Q1

REPORT INFORMATION
  Report Type: 
  Country: None (occurrence: None)
  Receive Date: 20070228
  Receipt Date: 20070228
  Transmission Date: 20070707
  Serious: Yes (Other)
  Sender: FDA-Public Use
  Company Number: None

PATIENT
  Age: 15 Year
  Sex: Male
  Weight: 74.8435 kg

DRUGS (5)
  1. CORICIDIN [Suspect]
     Indication: INTENTIONAL DRUG MISUSE
  2. CORICIDIN [Suspect]
     Indication: INTENTIONAL DRUG MISUSE
  3. LEXAPRO [Concomitant]
  4. CONCERTA [Concomitant]
  5. SEROQUEL [Concomitant]

REACTIONS (3)
  - FEELING ABNORMAL [None]
  - INTENTIONAL DRUG MISUSE [None]
  - INTENTIONAL OVERDOSE [None]
